FAERS Safety Report 15631126 (Version 1)
Quarter: 2018Q4

REPORT INFORMATION
  Report Type: Spontaneous
  Country: US (occurrence: US)
  Receive Date: 20181113
  Receipt Date: 20181113
  Transmission Date: 20190205
  Serious: Yes (Other)
  Sender: FDA-Public Use
  Company Number: None

PATIENT
  Age: 75 Year
  Sex: Male
  Weight: 100 kg

DRUGS (5)
  1. PREDNISONE. [Concomitant]
     Active Substance: PREDNISONE
     Dates: start: 20181025
  2. BACTRIM [Concomitant]
     Active Substance: SULFAMETHOXAZOLE\TRIMETHOPRIM
     Dates: start: 20181102
  3. PEMBROLIZUMAB. [Suspect]
     Active Substance: PEMBROLIZUMAB
     Indication: NEUROENDOCRINE CARCINOMA OF THE SKIN
     Route: 041
     Dates: start: 20181003, end: 20181003
  4. PEMBROLIZUMAB. [Suspect]
     Active Substance: PEMBROLIZUMAB
     Indication: RECURRENT CANCER
     Route: 041
     Dates: start: 20181003, end: 20181003
  5. METOPROLOL. [Concomitant]
     Active Substance: METOPROLOL
     Dates: start: 20171106

REACTIONS (9)
  - Immune-mediated adverse reaction [None]
  - Lymphocytosis [None]
  - Chronic lymphocytic leukaemia [None]
  - Pyrexia [None]
  - Lung infiltration [None]
  - Pneumonitis [None]
  - Malignant neoplasm progression [None]
  - Condition aggravated [None]
  - Splenomegaly [None]

NARRATIVE: CASE EVENT DATE: 20181113
